FAERS Safety Report 20712546 (Version 1)
Quarter: 2022Q2

REPORT INFORMATION
  Report Type: Spontaneous
  Country: HR (occurrence: HR)
  Receive Date: 20220415
  Receipt Date: 20220415
  Transmission Date: 20220721
  Serious: Yes (Other)
  Sender: FDA-Public Use
  Company Number: HR-SNT-000264

PATIENT
  Age: 37 Year
  Sex: Male

DRUGS (1)
  1. BUPROPION [Suspect]
     Active Substance: BUPROPION
     Indication: Product used for unknown indication
     Route: 042

REACTIONS (5)
  - Seizure [Recovered/Resolved]
  - Delusion [Recovered/Resolved]
  - Infestation [Recovered/Resolved]
  - Product use issue [Unknown]
  - Drug abuse [Unknown]
